FAERS Safety Report 5758159-X (Version None)
Quarter: 2008Q2

REPORT INFORMATION
  Report Type: 
  Country: None (occurrence: None)
  Receive Date: 20080602
  Receipt Date: 20080602
  Transmission Date: 20081010
  Serious: Yes (Hospitalization)
  Sender: FDA-Public Use
  Company Number: None

PATIENT
  Sex: Male
  Weight: 84 kg

DRUGS (9)
  1. MERCAPTOPURINE [Suspect]
     Dosage: 125 MG
     Dates: start: 20080505, end: 20080522
  2. METHOTREXATE [Suspect]
     Dosage: 40 MG
     Dates: end: 20080519
  3. VINCRISTINE SULFATE [Suspect]
     Dosage: 2 MG
     Dates: end: 20080505
  4. DEXAMETHASONE TAB [Suspect]
     Dosage: 12 MG
     Dates: end: 20080509
  5. ACYCLOVIR SODIUM [Concomitant]
  6. NEXIUM [Concomitant]
  7. PENTAMADINE [Concomitant]
  8. SYNTHROID [Concomitant]
  9. VORICONAZOLE [Concomitant]

REACTIONS (2)
  - PNEUMONIA [None]
  - SINUS CONGESTION [None]
